FAERS Safety Report 8609843-1 (Version None)
Quarter: 2012Q3

REPORT INFORMATION
  Report Type: 
  Country: None (occurrence: None)
  Receive Date: 20120821
  Receipt Date: 20120813
  Transmission Date: 20120928
  Serious: Yes (Other)
  Sender: FDA-Public Use
  Company Number: PHHY2012US070391

PATIENT
  Age: 61 Year
  Sex: Female

DRUGS (4)
  1. ECHINACEA [Concomitant]
     Indication: OROPHARYNGEAL PAIN
  2. BUFFERIN [Suspect]
     Indication: OROPHARYNGEAL PAIN
  3. ZINC SULFATE [Concomitant]
     Indication: OROPHARYNGEAL PAIN
  4. LOSARTAN POTASSIUM AND HYDROCHLOROTHIAZIDE [Concomitant]
     Indication: HYPERTENSION

REACTIONS (7)
  - FALL [None]
  - DIABETES MELLITUS [None]
  - INCORRECT DOSE ADMINISTERED [None]
  - HEAD INJURY [None]
  - LOWER LIMB FRACTURE [None]
  - WRIST FRACTURE [None]
  - LIGAMENT RUPTURE [None]
